FAERS Safety Report 4822303-9 (Version None)
Quarter: 2005Q4

REPORT INFORMATION
  Report Type: 
  Country: None (occurrence: None)
  Receive Date: 20051103
  Receipt Date: 20051018
  Transmission Date: 20060501
  Serious: Yes (Other)
  Sender: FDA-Public Use
  Company Number: US_010870769

PATIENT
  Age: 58 Year
  Sex: Male

DRUGS (6)
  1. HUMALOG [Suspect]
     Dates: start: 20010709
  2. HUMULIN N [Suspect]
     Indication: DIABETES MELLITUS
     Dates: start: 19710101, end: 20010709
  3. HUMULIN R [Suspect]
     Indication: DIABETES MELLITUS
     Dates: start: 19710101, end: 20010709
  4. INSULIN GLARGINE [Concomitant]
  5. COENZYME Q10 [Concomitant]
  6. OMEGA-3 FATTY ACIDS [Concomitant]

REACTIONS (6)
  - BLOOD GLUCOSE DECREASED [None]
  - BLOOD GLUCOSE INCREASED [None]
  - DEPRESSED LEVEL OF CONSCIOUSNESS [None]
  - DRUG DOSE OMISSION [None]
  - RETINOPATHY [None]
  - TREMOR [None]
